FAERS Safety Report 4498251-3 (Version None)
Quarter: 2004Q3

REPORT INFORMATION
  Report Type: 
  Country: None (occurrence: None)
  Receive Date: 20040927
  Receipt Date: 20040609
  Transmission Date: 20050211
  Serious: No
  Sender: FDA-Public Use
  Company Number: USA040669752

PATIENT
  Age: 36 Year
  Sex: Male

DRUGS (1)
  1. STRATTERA [Suspect]
     Indication: ATTENTION DEFICIT/HYPERACTIVITY DISORDER
     Dosage: 120 MG DAY
     Dates: start: 20040401

REACTIONS (5)
  - POLLAKIURIA [None]
  - PRESCRIBED OVERDOSE [None]
  - SEXUAL DYSFUNCTION [None]
  - URINARY RETENTION [None]
  - URINE ABNORMALITY [None]
